FAERS Safety Report 12208020 (Version 5)
Quarter: 2016Q3

REPORT INFORMATION
  Report Type: Report from Study
  Country: CA (occurrence: CA)
  Receive Date: 20160324
  Receipt Date: 20160711
  Transmission Date: 20161109
  Serious: Yes (Hospitalization, Other)
  Sender: FDA-Public Use
  Company Number: CA-INCYTE CORPORATION-2016IN001679

PATIENT
  Age: 63 Year
  Sex: Female

DRUGS (5)
  1. JAKAFI [Suspect]
     Active Substance: RUXOLITINIB
     Indication: MYELOFIBROSIS
     Dosage: 20 MG, BID
     Route: 048
     Dates: start: 20160113
  2. JAKAFI [Suspect]
     Active Substance: RUXOLITINIB
     Dosage: 10 MG, QD
     Route: 048
  3. JAKAFI [Suspect]
     Active Substance: RUXOLITINIB
     Dosage: 30 MG (20 MG IN MORNING AND 10 MG AT NIGHT)
     Route: 048
  4. CELLCEPT [Concomitant]
     Active Substance: MYCOPHENOLATE MOFETIL\MYCOPHENOLATE MOFETIL HYDROCHLORIDE
     Indication: PRODUCT USED FOR UNKNOWN INDICATION
     Route: 065
  5. LACTAID [Concomitant]
     Active Substance: LACTASE
     Indication: PRODUCT USED FOR UNKNOWN INDICATION
     Route: 065

REACTIONS (20)
  - Pneumonia [Recovering/Resolving]
  - Gastrointestinal disorder [Unknown]
  - Retching [Unknown]
  - Infection [Recovering/Resolving]
  - Weight decreased [Unknown]
  - Fatigue [Unknown]
  - Loss of consciousness [Unknown]
  - Anaemia [Recovering/Resolving]
  - Blood test abnormal [Unknown]
  - Oropharyngeal pain [Unknown]
  - Immunodeficiency [Unknown]
  - Diarrhoea [Unknown]
  - Pyrexia [Unknown]
  - Asthenia [Unknown]
  - Platelet count decreased [Unknown]
  - Urinary tract infection [Recovering/Resolving]
  - Fungal infection [Unknown]
  - Platelet count increased [Unknown]
  - Malaise [Unknown]
  - Influenza [Recovering/Resolving]

NARRATIVE: CASE EVENT DATE: 20160126
